FAERS Safety Report 10152892 (Version 1)
Quarter: 2014Q2

REPORT INFORMATION
  Report Type: Spontaneous
  Country: US (occurrence: US)
  Receive Date: 20140505
  Receipt Date: 20140505
  Transmission Date: 20141212
  Serious: Yes (Other)
  Sender: FDA-Public Use
  Company Number: US-GLAXOSMITHKLINE-A1070971A

PATIENT
  Sex: Female

DRUGS (1)
  1. LOVAZA [Suspect]
     Indication: CARDIAC DISORDER
     Dosage: 3CAP PER DAY
     Route: 065
     Dates: start: 2007

REACTIONS (2)
  - Radiotherapy [Recovered/Resolved]
  - Blood cholesterol increased [Not Recovered/Not Resolved]
